FAERS Safety Report 9677493 (Version 7)
Quarter: 2014Q1

REPORT INFORMATION
  Report Type: Report from Study
  Country: US (occurrence: US)
  Receive Date: 20131108
  Receipt Date: 20140217
  Transmission Date: 20141002
  Serious: Yes (Hospitalization)
  Sender: FDA-Public Use
  Company Number: PHEH2013US023033

PATIENT
  Age: 38 Year
  Sex: Female

DRUGS (2)
  1. MYFORTIC [Suspect]
     Indication: RENAL TRANSPLANT
     Dosage: 540 MG, BID
     Route: 048
     Dates: start: 201301, end: 201302
  2. HECORIA [Concomitant]
     Indication: RENAL TRANSPLANT
     Dosage: 5 MG, BID
     Route: 048

REACTIONS (3)
  - Respiratory failure [Recovering/Resolving]
  - Kidney transplant rejection [Recovering/Resolving]
  - Sedation [Recovering/Resolving]
